FAERS Safety Report 5295888-9 (Version None)
Quarter: 2007Q2

REPORT INFORMATION
  Report Type: 
  Country: None (occurrence: None)
  Receive Date: 20070413
  Receipt Date: 20070303
  Transmission Date: 20071010
  Serious: Yes (Hospitalization, Other)
  Sender: FDA-Public Use
  Company Number: PHBS2007BR06034

PATIENT
  Age: 84 Year
  Sex: Male
  Weight: 78 kg

DRUGS (4)
  1. DIOVAN [Suspect]
     Indication: HYPERTENSION
     Dosage: 160 MG, QD
  2. DIOVAN [Suspect]
     Dosage: 80 MG/DAY
     Route: 048
  3. FINASTERIDE [Concomitant]
     Indication: PROSTATIC DISORDER
  4. UNOPROST [Concomitant]
     Indication: BLADDER DISORDER
     Dosage: 1 TABLET/DAY
     Route: 048

REACTIONS (4)
  - DEMENTIA ALZHEIMER'S TYPE [None]
  - HYPOTENSION [None]
  - MEMORY IMPAIRMENT [None]
  - VASCULAR BYPASS GRAFT [None]
